FAERS Safety Report 12326184 (Version 3)
Quarter: 2024Q4

REPORT INFORMATION
  Report Type: Spontaneous
  Country: IT (occurrence: IT)
  Receive Date: 20160503
  Receipt Date: 20241113
  Transmission Date: 20250115
  Serious: Yes (Hospitalization, Other)
  Sender: ACCORD
  Company Number: IT-ACCORD-039960

PATIENT
  Age: 37 Year
  Sex: Female

DRUGS (3)
  1. MYCOPHENOLIC ACID [Suspect]
     Active Substance: MYCOPHENOLIC ACID
     Indication: Renal transplant
  2. TACROLIMUS [Suspect]
     Active Substance: TACROLIMUS
     Indication: Renal transplant
  3. PREDNISONE [Suspect]
     Active Substance: PREDNISONE
     Indication: Renal transplant

REACTIONS (5)
  - Cytomegalovirus infection [Unknown]
  - Odynophagia [Recovered/Resolved]
  - Oesophageal ulcer [Recovered/Resolved]
  - Weight decreased [Recovering/Resolving]
  - Abdominal pain upper [Recovered/Resolved]

NARRATIVE: CASE EVENT DATE: 20141202
